FAERS Safety Report 26146312 (Version 2)
Quarter: 2025Q4

REPORT INFORMATION
  Report Type: Spontaneous
  Country: EU (occurrence: EU)
  Receive Date: 20251211
  Receipt Date: 20251222
  Transmission Date: 20260118
  Serious: Yes (Other)
  Sender: TEVA
  Company Number: EU-TEVA-VS-3400207

PATIENT
  Age: 12 Year
  Sex: Male

DRUGS (2)
  1. PREDNISONE [Suspect]
     Active Substance: PREDNISONE
     Indication: Vogt-Koyanagi-Harada disease
     Dosage: TAPERED AND DISCONTINUED, RE-INITIATED AND DISCONTINUED
     Route: 048
  2. MYCOPHENOLATE MOFETIL [Concomitant]
     Active Substance: MYCOPHENOLATE MOFETIL
     Indication: Vogt-Koyanagi-Harada disease
     Route: 065

REACTIONS (5)
  - Cushing^s syndrome [Unknown]
  - Steroid withdrawal syndrome [Unknown]
  - Hyperinsulinaemia [Unknown]
  - Secondary adrenocortical insufficiency [Unknown]
  - Growth disorder [Unknown]
